FAERS Safety Report 5361601-X (Version None)
Quarter: 2007Q2

REPORT INFORMATION
  Report Type: 
  Country: None (occurrence: None)
  Receive Date: 20070619
  Receipt Date: 20070608
  Transmission Date: 20071010
  Serious: Yes (Hospitalization)
  Sender: FDA-Public Use
  Company Number: JP-NOVOPROD-264035

PATIENT
  Age: 72 Year
  Sex: Female
  Weight: 41 kg

DRUGS (10)
  1. NOVOLIN R [Suspect]
     Indication: INSULIN-REQUIRING TYPE II DIABETES MELLITUS
     Dosage: 36 IU, QD
     Route: 058
     Dates: start: 20051029
  2. NOVOLIN N [Suspect]
     Indication: INSULIN-REQUIRING TYPE II DIABETES MELLITUS
     Route: 058
     Dates: start: 20051029, end: 20060101
  3. ASPIRIN [Concomitant]
  4. TAKEPRON [Concomitant]
  5. NIVADIL [Concomitant]
  6. METFORMIN HCL [Concomitant]
  7. MEVALOTIN [Concomitant]
  8. BASEN [Concomitant]
  9. SELBEX [Concomitant]
  10. METHYCOBAL                         /00056201/ [Concomitant]

REACTIONS (2)
  - ANTI-INSULIN ANTIBODY [None]
  - BLOOD GLUCOSE ABNORMAL [None]
